FAERS Safety Report 13433304 (Version 4)
Quarter: 2017Q2

REPORT INFORMATION
  Report Type: Spontaneous
  Country: JP (occurrence: JP)
  Receive Date: 20170412
  Receipt Date: 20170519
  Transmission Date: 20170830
  Serious: Yes (Hospitalization, Other)
  Sender: FDA-Public Use
  Company Number: JP-ELI_LILLY_AND_COMPANY-JP201704003568

PATIENT
  Age: 64 Year
  Sex: Male

DRUGS (2)
  1. ERBITUX [Suspect]
     Active Substance: CETUXIMAB
     Indication: COLON CANCER
     Dosage: 420 MG/M2, WEEKLY (1/W)
     Route: 042
     Dates: start: 20160831, end: 20170322
  2. CPT-11 [Concomitant]
     Active Substance: IRINOTECAN
     Indication: COLON CANCER
     Dosage: 200 MG/M2, UNK
     Route: 041
     Dates: start: 20160831, end: 20170322

REACTIONS (4)
  - Myelopathy [Recovering/Resolving]
  - Cerebrospinal fluid leakage [Recovering/Resolving]
  - Wound infection [Recovering/Resolving]
  - Metastases to thorax [Recovering/Resolving]

NARRATIVE: CASE EVENT DATE: 20170325
